FAERS Safety Report 9060964 (Version 1)
Quarter: 2013Q1

REPORT INFORMATION
  Report Type: Spontaneous
  Country: US (occurrence: US)
  Receive Date: 20130213
  Receipt Date: 20130213
  Transmission Date: 20140127
  Serious: No
  Sender: FDA-Public Use
  Company Number: US-009507513-1302USA003609

PATIENT
  Sex: Female

DRUGS (2)
  1. PEGINTRON [Suspect]
     Dosage: UNK
     Dates: start: 20130201
  2. GLOBULIN, IMMUNE [Concomitant]

REACTIONS (1)
  - Fatigue [Recovered/Resolved]
